FAERS Safety Report 9778336 (Version 1)
Quarter: 2013Q4

REPORT INFORMATION
  Report Type: Spontaneous
  Country: US (occurrence: US)
  Receive Date: 20131223
  Receipt Date: 20131223
  Transmission Date: 20140711
  Serious: Yes (Other)
  Sender: FDA-Public Use
  Company Number: US-BAYER-2013-154530

PATIENT
  Age: 20 Year
  Sex: Female

DRUGS (1)
  1. MIRENA [Suspect]
     Indication: CONTRACEPTION
     Dosage: 20 MCG/24HR, CONT
     Route: 015
     Dates: start: 20120724, end: 20121218

REACTIONS (10)
  - Uterine perforation [None]
  - Emotional distress [None]
  - Device difficult to use [None]
  - Genital haemorrhage [None]
  - Abdominal pain [None]
  - Pelvic pain [None]
  - Abdominal pain lower [None]
  - Injury [None]
  - Device dislocation [None]
  - Medical device complication [None]
